FAERS Safety Report 23319436 (Version 1)
Quarter: 2023Q4

REPORT INFORMATION
  Report Type: Spontaneous
  Country: US (occurrence: US)
  Receive Date: 20231220
  Receipt Date: 20231220
  Transmission Date: 20240109
  Serious: No
  Sender: FDA-Public Use
  Company Number: US-OPELLA-2023OHG017818

PATIENT
  Sex: Male

DRUGS (3)
  1. CORTIZONE 10 [Suspect]
     Active Substance: HYDROCORTISONE
     Indication: Product used for unknown indication
  2. CORTIZONE 10 [Suspect]
     Active Substance: HYDROCORTISONE
  3. CORTIZONE 10 [Suspect]
     Active Substance: HYDROCORTISONE

REACTIONS (2)
  - Wrong technique in product usage process [Unknown]
  - No adverse event [Unknown]
